FAERS Safety Report 26103035 (Version 1)
Quarter: 2025Q4

REPORT INFORMATION
  Report Type: Spontaneous
  Country: CN (occurrence: CN)
  Receive Date: 20251129
  Receipt Date: 20251129
  Transmission Date: 20260118
  Serious: Yes (Hospitalization)
  Sender: ROCHE
  Company Number: CN-ROCHE-10000442327

PATIENT
  Age: 35 Year
  Sex: Female

DRUGS (2)
  1. ENTRECTINIB [Suspect]
     Active Substance: ENTRECTINIB
     Indication: Lung neoplasm malignant
     Route: 065
  2. LAROTRECTINIB [Concomitant]
     Active Substance: LAROTRECTINIB

REACTIONS (1)
  - Interstitial lung disease [Recovered/Resolved]
